FAERS Safety Report 18224728 (Version 1)
Quarter: 2020Q3

REPORT INFORMATION
  Report Type: Other
  Country: CN (occurrence: CN)
  Receive Date: 20200903
  Receipt Date: 20200903
  Transmission Date: 20201103
  Serious: Yes (Other)
  Sender: FDA-Public Use
  Company Number: CN-ROCHE-2664745

PATIENT

DRUGS (3)
  1. ATEZOLIZUMAB. [Suspect]
     Active Substance: ATEZOLIZUMAB
     Indication: NON-SMALL CELL LUNG CANCER
     Route: 065
  2. NIVOLUMAB [Suspect]
     Active Substance: NIVOLUMAB
     Indication: NON-SMALL CELL LUNG CANCER
     Route: 065
  3. PEMBROLIZUMAB. [Suspect]
     Active Substance: PEMBROLIZUMAB
     Indication: NON-SMALL CELL LUNG CANCER
     Route: 065

REACTIONS (9)
  - Pneumonitis [Unknown]
  - Renal impairment [Unknown]
  - Hyperglycaemia [Unknown]
  - Adrenal insufficiency [Unknown]
  - Vision blurred [Unknown]
  - Alanine aminotransferase increased [Unknown]
  - Gastrointestinal disorder [Unknown]
  - Off label use [Unknown]
  - Intentional product use issue [Unknown]
